FAERS Safety Report 18601563 (Version 5)
Quarter: 2023Q1

REPORT INFORMATION
  Report Type: Report from Study
  Country: US (occurrence: US)
  Receive Date: 20201210
  Receipt Date: 20230106
  Transmission Date: 20230417
  Serious: Yes (Hospitalization, Other)
  Sender: FDA-Public Use
  Company Number: US-TAKEDA-2020TUS055836

PATIENT
  Age: 77 Year
  Sex: Male
  Weight: 104.3 kg

DRUGS (68)
  1. HUMAN IMMUNOGLOBULIN G [Suspect]
     Active Substance: HUMAN IMMUNOGLOBULIN G
     Indication: Combined immunodeficiency
     Dosage: 30 GRAM, Q2WEEKS
     Route: 058
     Dates: start: 20191024
  2. ACETAMINOPHEN [Concomitant]
     Active Substance: ACETAMINOPHEN
  3. DIPHENHYDRAMINE [Concomitant]
     Active Substance: DIPHENHYDRAMINE
  4. EPINEPHRINE [Concomitant]
     Active Substance: EPINEPHRINE
  5. LIDOCAINE [Concomitant]
     Active Substance: LIDOCAINE
  6. WARFARIN SODIUM [Concomitant]
     Active Substance: WARFARIN SODIUM
  7. CIALIS [Concomitant]
     Active Substance: TADALAFIL
  8. FLOMAX [Concomitant]
     Active Substance: TAMSULOSIN HYDROCHLORIDE
  9. DIETARY SUPPLEMENT [Concomitant]
     Active Substance: DIETARY SUPPLEMENT
  10. AFRIN [OXYMETAZOLINE] [Concomitant]
     Route: 045
  11. VITAMIN B12 [Concomitant]
     Active Substance: CYANOCOBALAMIN
  12. DEPO-TESTOSTERONE [Concomitant]
     Active Substance: TESTOSTERONE CYPIONATE
  13. VITAMIN B6 [Concomitant]
     Active Substance: PYRIDOXINE HYDROCHLORIDE
  14. SODIUM BICARBONATE [Concomitant]
     Active Substance: SODIUM BICARBONATE
  15. FINASTERIDE [Concomitant]
     Active Substance: FINASTERIDE
  16. ZINC [Concomitant]
     Active Substance: ZINC
  17. ARMOUR THYROID [Concomitant]
     Active Substance: THYROID, PORCINE
  18. LEVOCARNITINE [Concomitant]
     Active Substance: LEVOCARNITINE
  19. DILTIAZEM [Concomitant]
     Active Substance: DILTIAZEM
  20. CINNAMON [CINNAMOMUM VERUM] [Concomitant]
  21. HERBALS\TURMERIC [Concomitant]
     Active Substance: HERBALS\TURMERIC
  22. VITAMIN C [Concomitant]
     Active Substance: ASCORBIC ACID
  23. COLLAGEN [Concomitant]
     Active Substance: COLLAGEN
  24. KRILL OIL [Concomitant]
     Active Substance: DIETARY SUPPLEMENT\KRILL OIL
  25. COENZYME Q10 [Concomitant]
     Active Substance: DIETARY SUPPLEMENT\UBIDECARENONE
  26. RIBOFLAVIN [Concomitant]
     Active Substance: RIBOFLAVIN
  27. SELENIUM [Concomitant]
     Active Substance: SELENIUM
  28. ECHINACEA ANGUSTIFOLIA [Concomitant]
     Active Substance: ECHINACEA ANGUSTIFOLIA
  29. METFORMIN [Concomitant]
     Active Substance: METFORMIN HYDROCHLORIDE
  30. METOPROLOL SUCCINATE [Concomitant]
     Active Substance: METOPROLOL SUCCINATE
  31. COPPER [Concomitant]
     Active Substance: COPPER
  32. RASPBERRY KETONE [Concomitant]
     Active Substance: RASPBERRY KETONE
  33. GRAPE SEED EXTRACT [VITIS VINIFERA SEED] [Concomitant]
  34. OLIVE LEAVES EXTRACT [Concomitant]
  35. LOSARTAN POTASSIUM [Concomitant]
     Active Substance: LOSARTAN POTASSIUM
  36. AMOXICILLIN [Concomitant]
     Active Substance: AMOXICILLIN
  37. VITAMIN D3 [Concomitant]
     Active Substance: CHOLECALCIFEROL
  38. PAPAYA ENZYME [PAPAIN] [Concomitant]
  39. HAWTHORN [CRATAEGUS LAEVIGATA] [Concomitant]
  40. CURCUMIN [Concomitant]
     Active Substance: CURCUMIN
  41. RETINOL [Concomitant]
     Active Substance: RETINOL
  42. ALPHA LIPOIC ACID [Concomitant]
     Active Substance: .ALPHA.-LIPOIC ACID
  43. CALCIUM [Concomitant]
     Active Substance: CALCIUM
  44. BILBERRY [Concomitant]
     Active Substance: BILBERRY
  45. DIETARY SUPPLEMENT\RESVERATROL [Concomitant]
     Active Substance: DIETARY SUPPLEMENT\RESVERATROL
  46. SODIUM NITRATE [Concomitant]
     Active Substance: SODIUM NITRATE
  47. GINGER [Concomitant]
     Active Substance: GINGER
  48. MAGNESIUM [Concomitant]
     Active Substance: MAGNESIUM
  49. CHROMIUM [Concomitant]
     Active Substance: CHROMIC CHLORIDE\CHROMIUM
  50. MENAQUINONE 6 [Concomitant]
     Active Substance: MENAQUINONE 6
  51. PHOSPHORUS [Concomitant]
     Active Substance: PHOSPHORUS
  52. NATTOKINASE [Concomitant]
     Active Substance: NATTOKINASE
  53. VITAMIN B2 [Concomitant]
     Active Substance: RIBOFLAVIN
     Route: 065
  54. FOLIC ACID [Concomitant]
     Active Substance: FOLIC ACID
     Route: 065
  55. COENZYME Q10 [Concomitant]
     Active Substance: DIETARY SUPPLEMENT\UBIDECARENONE
     Route: 065
  56. GABAPENTIN [Concomitant]
     Active Substance: GABAPENTIN
     Route: 065
  57. AMOXICILLIN [Concomitant]
     Active Substance: AMOXICILLIN
  58. VITAMIN K [Concomitant]
     Active Substance: PHYTONADIONE
  59. METFORMIN HYDROCHLORIDE [Concomitant]
     Active Substance: METFORMIN HYDROCHLORIDE
  60. TRELEGY ELLIPTA [Concomitant]
     Active Substance: FLUTICASONE FUROATE\UMECLIDINIUM BROMIDE\VILANTEROL TRIFENATATE
  61. PRILOSEC [Concomitant]
     Active Substance: OMEPRAZOLE MAGNESIUM
  62. BACLOFEN [Concomitant]
     Active Substance: BACLOFEN
  63. MYCOPHENOLATE MOFETIL [Concomitant]
     Active Substance: MYCOPHENOLATE MOFETIL
  64. GOLYTELY [Concomitant]
     Active Substance: POLYETHYLENE GLYCOL 3350\POTASSIUM CHLORIDE\SODIUM BICARBONATE\SODIUM CHLORIDE\SODIUM SULFATE
  65. OXYGEN [Concomitant]
     Active Substance: OXYGEN
  66. OMEPRAZOLE [Concomitant]
     Active Substance: OMEPRAZOLE
  67. PHOSPHORUS [Concomitant]
     Active Substance: PHOSPHORUS
  68. VITAMIN B [Concomitant]
     Active Substance: VITAMIN B

REACTIONS (4)
  - Pneumonia [Unknown]
  - Prostatitis [Unknown]
  - Nerve compression [Unknown]
  - Cough [Unknown]

NARRATIVE: CASE EVENT DATE: 20201118
